FAERS Safety Report 4457620-8 (Version None)
Quarter: 2004Q3

REPORT INFORMATION
  Report Type: 
  Country: None (occurrence: None)
  Receive Date: 20040922
  Receipt Date: 20040909
  Transmission Date: 20050211
  Serious: Yes (Other)
  Sender: FDA-Public Use
  Company Number: HQWYE984810SEP04

PATIENT
  Age: 30 Year
  Sex: Male

DRUGS (2)
  1. EFFEXOR [Suspect]
  2. ZYPREXA [Suspect]

REACTIONS (2)
  - INTENTIONAL SELF-INJURY [None]
  - LACERATION [None]
